FAERS Safety Report 7487790-9 (Version None)
Quarter: 2011Q2

REPORT INFORMATION
  Report Type: 
  Country: None (occurrence: None)
  Receive Date: 20110518
  Receipt Date: 20110513
  Transmission Date: 20111010
  Serious: Yes (Life-Threatening, Hospitalization, Other)
  Sender: FDA-Public Use
  Company Number: PHHY2011US12144

PATIENT
  Sex: Female

DRUGS (1)
  1. GILENYA [Suspect]
     Indication: MULTIPLE SCLEROSIS
     Dosage: 0.5 MG, DAILY
     Route: 048
     Dates: start: 20101216, end: 20110208

REACTIONS (12)
  - HEPATIC INFECTION [None]
  - VOMITING [None]
  - CHILLS [None]
  - WHITE BLOOD CELL COUNT DECREASED [None]
  - PYREXIA [None]
  - GAIT DISTURBANCE [None]
  - INFECTION [None]
  - FEELING ABNORMAL [None]
  - LYMPHOCYTE COUNT DECREASED [None]
  - IMMUNE SYSTEM DISORDER [None]
  - LIVER FUNCTION TEST ABNORMAL [None]
  - PNEUMONIA [None]
